FAERS Safety Report 25644310 (Version 1)
Quarter: 2025Q3

REPORT INFORMATION
  Report Type: Spontaneous
  Country: EU (occurrence: EU)
  Receive Date: 20250805
  Receipt Date: 20250805
  Transmission Date: 20251021
  Serious: Yes (Hospitalization)
  Sender: ALEXION PHARMACEUTICALS
  Company Number: None

PATIENT
  Age: 75 Year
  Sex: Male
  Weight: 71 kg

DRUGS (1)
  1. TAGRISSO [Suspect]
     Active Substance: OSIMERTINIB
     Indication: Adenocarcinoma

REACTIONS (2)
  - Dilated cardiomyopathy [Not Recovered/Not Resolved]
  - Myocardial fibrosis [Not Recovered/Not Resolved]

NARRATIVE: CASE EVENT DATE: 20250201
